FAERS Safety Report 5125223-8 (Version None)
Quarter: 2006Q4

REPORT INFORMATION
  Report Type: 
  Country: None (occurrence: None)
  Receive Date: 20061006
  Receipt Date: 20060920
  Transmission Date: 20070319
  Serious: Yes (Other)
  Sender: FDA-Public Use
  Company Number: ENTC2006-0248

PATIENT
  Age: 93 Year
  Sex: Male

DRUGS (3)
  1. STALEVO 100 [Suspect]
     Dosage: 50/12.5/200 MG QID, ORAL
     Route: 048
     Dates: start: 20060815
  2. COMTAN [Suspect]
     Dosage: 800 MG, 4 IN 1 D
     Dates: start: 20060815, end: 20060816
  3. SINEMET [Suspect]
     Dosage: 12.5/50 MG QID
     Dates: start: 20060815, end: 20060816

REACTIONS (3)
  - DRUG DISPENSING ERROR [None]
  - MUSCLE RIGIDITY [None]
  - NAUSEA [None]
